FAERS Safety Report 18612380 (Version 3)
Quarter: 2021Q1

REPORT INFORMATION
  Report Type: Spontaneous
  Country: CA (occurrence: CA)
  Receive Date: 20201214
  Receipt Date: 20210112
  Transmission Date: 20210419
  Serious: No
  Sender: FDA-Public Use
  Company Number: CA-PFIZER INC-2020248392

PATIENT
  Age: 62 Year
  Sex: Female
  Weight: 55.5 kg

DRUGS (12)
  1. HYDROCORTISONE. [Concomitant]
     Active Substance: HYDROCORTISONE
     Indication: RASH
     Dosage: 1 G, 2X/DAY (APPLY THIN LAYER TO AFFECTED AREAS FOR RASH; DISPENSE 100 GM 1% HC CREAM)
     Route: 061
  2. PROCHLORPERAZINE MALEATE. [Concomitant]
     Active Substance: PROCHLORPERAZINE MALEATE
     Indication: NAUSEA
     Dosage: 10 MG (EVERY 4 TO 6 HOURS AS REQUIRED)
     Route: 048
  3. SYNTHROID [Concomitant]
     Active Substance: LEVOTHYROXINE SODIUM
     Dosage: 112 UG
  4. INLYTA [Suspect]
     Active Substance: AXITINIB
     Indication: METASTATIC RENAL CELL CARCINOMA
     Dosage: 5 MG, 2X/DAY
     Route: 048
     Dates: start: 20200703, end: 2020
  5. MORPHINE [Concomitant]
     Active Substance: MORPHINE
     Dosage: 1 MG, AS NEEDED
  6. DIPHENHYDRAMINE HCL [Concomitant]
     Active Substance: DIPHENHYDRAMINE HYDROCHLORIDE
     Indication: RASH
     Dosage: 25 MG (TAKE 1 TO 2 CAPSULES/25?50MG EVERY 6 HOURS)
     Route: 048
  7. INLYTA [Suspect]
     Active Substance: AXITINIB
     Dosage: 10 MG, 2X/DAY (MAY INCREASE TO 10 MG, TWICE DAILY (BID) IF TOLERATED)
  8. DIPHENHYDRAMINE HCL [Concomitant]
     Active Substance: DIPHENHYDRAMINE HYDROCHLORIDE
     Indication: PRURITUS
  9. LOPERAMIDE HCL [Concomitant]
     Active Substance: LOPERAMIDE HYDROCHLORIDE
     Indication: DIARRHOEA
     Dosage: 2 MG, AS NEEDED (TAKE TWO TABLET AT ONCE, THEN 1 TABLET EVERY 4 HOURS)
     Route: 048
  10. PEMBROLIZUMAB. [Concomitant]
     Active Substance: PEMBROLIZUMAB
     Dosage: 200 MG, CYCLIC (EVERY 3 WEEKS)
  11. PROCHLORPERAZINE MALEATE. [Concomitant]
     Active Substance: PROCHLORPERAZINE MALEATE
     Indication: VOMITING
  12. INLYTA [Suspect]
     Active Substance: AXITINIB
     Dosage: 7 MG, 2X/DAY (MAY INCREASE TO 7 MG, TWICE DAILY (BID))

REACTIONS (2)
  - Weight increased [Unknown]
  - Off label use [Unknown]

NARRATIVE: CASE EVENT DATE: 20200703
